FAERS Safety Report 24073615 (Version 2)
Quarter: 2024Q3

REPORT INFORMATION
  Report Type: Spontaneous
  Country: JP (occurrence: JP)
  Receive Date: 20240710
  Receipt Date: 20240903
  Transmission Date: 20241017
  Serious: Yes (Other)
  Sender: MERCK
  Company Number: JP-MSD-M2024-19822

PATIENT
  Sex: Male

DRUGS (4)
  1. KEYTRUDA [Suspect]
     Active Substance: PEMBROLIZUMAB
     Indication: Renal cell carcinoma
     Dosage: 200 MILLIGRAM, Q3W
     Route: 041
     Dates: start: 20240412
  2. LENVATINIB MESYLATE [Concomitant]
     Active Substance: LENVATINIB MESYLATE
     Indication: Renal cell carcinoma
     Dosage: 14 MILLIGRAM, QD
     Route: 048
     Dates: start: 20240412, end: 2024
  3. LENVATINIB MESYLATE [Concomitant]
     Active Substance: LENVATINIB MESYLATE
     Dosage: 20 MILLIGRAM, QD
     Route: 048
     Dates: start: 2024, end: 2024
  4. LENVATINIB MESYLATE [Concomitant]
     Active Substance: LENVATINIB MESYLATE
     Dosage: 4 MILLIGRAM, QD
     Route: 048
     Dates: start: 2024

REACTIONS (3)
  - Proteinuria [Recovering/Resolving]
  - Hepatic function abnormal [Recovered/Resolved]
  - Palmar-plantar erythrodysaesthesia syndrome [Recovered/Resolved]

NARRATIVE: CASE EVENT DATE: 20240510
